FAERS Safety Report 8479676 (Version 4)
Quarter: 2013Q1

REPORT INFORMATION
  Report Type: Spontaneous
  Country: GB (occurrence: GB)
  Receive Date: 20120328
  Receipt Date: 20130225
  Transmission Date: 20140127
  Serious: Yes (Other)
  Sender: FDA-Public Use
  Company Number: GB-JNJFOC-20120312839

PATIENT
  Age: 63 Year
  Sex: Male

DRUGS (2)
  1. CETIRIZINE HYDROCHLORIDE [Suspect]
     Indication: PRURITUS
     Dosage: TAKING FOR 5 YEARS
     Route: 065
  2. CETIRIZINE HYDROCHLORIDE [Suspect]
     Indication: URTICARIA PIGMENTOSA
     Dosage: TAKING FOR 5 YEARS
     Route: 065

REACTIONS (5)
  - Tubulointerstitial nephritis [Recovering/Resolving]
  - Biopsy kidney abnormal [Unknown]
  - Blood urea increased [Unknown]
  - Blood creatinine increased [Unknown]
  - Hypersensitivity [Recovering/Resolving]
